FAERS Safety Report 11063166 (Version 3)
Quarter: 2016Q2

REPORT INFORMATION
  Report Type: Spontaneous
  Country: US (occurrence: US)
  Receive Date: 20150424
  Receipt Date: 20160426
  Transmission Date: 20160815
  Serious: No
  Sender: FDA-Public Use
  Company Number: US-ALKERMES INC.-ALK-2015-004411

PATIENT

DRUGS (3)
  1. BUPROPION. [Concomitant]
     Active Substance: BUPROPION
     Indication: PRODUCT USED FOR UNKNOWN INDICATION
     Dosage: 300 MG, UNK
     Dates: start: 201412
  2. VIVITROL [Suspect]
     Active Substance: NALTREXONE
     Indication: DRUG DEPENDENCE
     Dosage: 380 MG, QMO
     Route: 030
     Dates: start: 20150311, end: 20150311
  3. LEVOTHYROXINE. [Concomitant]
     Active Substance: LEVOTHYROXINE
     Indication: PRODUCT USED FOR UNKNOWN INDICATION
     Dosage: 137 ?G, UNK
     Dates: start: 2005

REACTIONS (12)
  - Injection site reaction [Recovering/Resolving]
  - Injection site pain [Recovered/Resolved]
  - Injection site induration [Recovering/Resolving]
  - Hypoaesthesia [Unknown]
  - Paraesthesia [Unknown]
  - Sciatic nerve injury [Unknown]
  - Drug administration error [Recovered/Resolved]
  - Injection site nodule [Recovering/Resolving]
  - Neuritis [Recovering/Resolving]
  - Muscular weakness [Recovering/Resolving]
  - Injection site paraesthesia [Recovering/Resolving]
  - Burning sensation [Unknown]

NARRATIVE: CASE EVENT DATE: 20150311
